FAERS Safety Report 7244921-3 (Version None)
Quarter: 2011Q1

REPORT INFORMATION
  Report Type: 
  Country: None (occurrence: None)
  Receive Date: 20110126
  Receipt Date: 20110111
  Transmission Date: 20110831
  Serious: Yes (Hospitalization)
  Sender: FDA-Public Use
  Company Number: FR-ELI_LILLY_AND_COMPANY-FR201012003745

PATIENT
  Sex: Female

DRUGS (5)
  1. COAPROVEL [Concomitant]
     Indication: HYPERTENSION
     Route: 048
  2. TOPALGIC [Concomitant]
     Indication: PAIN
     Route: 048
  3. SINEMET [Concomitant]
     Indication: PARKINSON'S DISEASE
     Route: 048
  4. FORTEO [Suspect]
     Indication: OSTEOPOROSIS
     Dosage: 20 UG, DAILY (1/D)
     Route: 058
     Dates: start: 20100717, end: 20101111
  5. DAFALGAN [Concomitant]
     Indication: PAIN
     Route: 048

REACTIONS (3)
  - PARKINSON'S DISEASE [None]
  - ESCHERICHIA URINARY TRACT INFECTION [None]
  - FAECALOMA [None]
